FAERS Safety Report 4558559-X (Version None)
Quarter: 2005Q1

REPORT INFORMATION
  Report Type: 
  Country: None (occurrence: None)
  Receive Date: 20050121
  Receipt Date: 20041217
  Transmission Date: 20050727
  Serious: Yes (Death, Other)
  Sender: FDA-Public Use
  Company Number: GB-BRISTOL-MYERS SQUIBB COMPANY-12804456

PATIENT
  Age: 72 Year
  Sex: Male

DRUGS (13)
  1. CYCLOPHOSPHAMIDE [Suspect]
     Indication: PULMONARY FIBROSIS
     Route: 048
     Dates: start: 20020422, end: 20041019
  2. OXYGEN [Concomitant]
  3. DICLOFENAC [Concomitant]
     Dates: start: 19990715
  4. LANSOPRAZOLE [Concomitant]
     Dates: start: 20040304
  5. KETOPROFEN [Concomitant]
     Dates: start: 20040507
  6. PREDNISOLONE [Concomitant]
     Dates: start: 20040614
  7. OLMESARTAN MEDOXOMIL [Concomitant]
     Dates: start: 20040615
  8. SALMETEROL XINAFOATE [Concomitant]
     Dates: start: 20041026
  9. COMBIVENT [Concomitant]
     Dates: start: 20041026
  10. AMOXICILLIN [Concomitant]
     Dates: end: 20041105
  11. FENTANYL [Concomitant]
  12. HYPROMELLOSE [Concomitant]
  13. TRIMETHOPRIM-SULFAMETHOXAZOLE [Concomitant]

REACTIONS (3)
  - MYELOPROLIFERATIVE DISORDER [None]
  - PULMONARY FIBROSIS [None]
  - RESPIRATORY FAILURE [None]
